FAERS Safety Report 19111400 (Version 1)
Quarter: 2021Q2

REPORT INFORMATION
  Report Type: Spontaneous
  Country: US (occurrence: US)
  Receive Date: 20210409
  Receipt Date: 20210409
  Transmission Date: 20210717
  Serious: Yes (Hospitalization)
  Sender: FDA-Public Use
  Company Number: None

PATIENT
  Age: 35 Year
  Sex: Male
  Weight: 89.1 kg

DRUGS (6)
  1. CYCLOPHOSPHAMIDE. [Suspect]
     Active Substance: CYCLOPHOSPHAMIDE
     Dates: end: 20210316
  2. CYTARABINE. [Suspect]
     Active Substance: CYTARABINE
     Dates: end: 20210326
  3. METHOTREXATE. [Suspect]
     Active Substance: METHOTREXATE
     Dates: end: 20210330
  4. VINCRISTINE SULFATE. [Suspect]
     Active Substance: VINCRISTINE SULFATE
     Dates: end: 20210330
  5. MERCAPTOPURINE. [Suspect]
     Active Substance: MERCAPTOPURINE
     Dates: end: 20210329
  6. ONCASPAR [Suspect]
     Active Substance: PEGASPARGASE
     Dates: end: 20210330

REACTIONS (6)
  - Febrile neutropenia [None]
  - Blood lactate dehydrogenase abnormal [None]
  - Neutropenia [None]
  - Pain [None]
  - Thrombocytopenia [None]
  - White blood cell count decreased [None]

NARRATIVE: CASE EVENT DATE: 20210403
